FAERS Safety Report 4959767-6 (Version None)
Quarter: 2006Q1

REPORT INFORMATION
  Report Type: 
  Country: None (occurrence: None)
  Receive Date: 20060324
  Receipt Date: 20060313
  Transmission Date: 20060701
  Serious: Yes (Other)
  Sender: FDA-Public Use
  Company Number: 2006S1000052

PATIENT
  Sex: Male

DRUGS (2)
  1. CUBICIN [Suspect]
     Indication: STAPHYLOCOCCAL OSTEOMYELITIS
     Dosage: 6  MG/KG
  2. CUBICIN [Suspect]
     Indication: WOUND INFECTION
     Dosage: 6  MG/KG

REACTIONS (2)
  - CATHETER BACTERAEMIA [None]
  - STAPHYLOCOCCAL BACTERAEMIA [None]
